FAERS Safety Report 19991302 (Version 3)
Quarter: 2022Q2

REPORT INFORMATION
  Report Type: Other
  Country: AU (occurrence: AU)
  Receive Date: 20211025
  Receipt Date: 20220630
  Transmission Date: 20220720
  Serious: Yes (Death, Other)
  Sender: FDA-Public Use
  Company Number: AU-DECIPHERA PHARMACEUTICALS LLC-2021AU000957

PATIENT
  Sex: Male

DRUGS (2)
  1. QINLOCK [Suspect]
     Active Substance: RIPRETINIB
     Indication: Gastrointestinal stromal tumour
     Dosage: 150 MILLIGRAM, QD
     Route: 048
     Dates: start: 202011
  2. QINLOCK [Suspect]
     Active Substance: RIPRETINIB
     Dosage: 150 MILLIGRAM, BID
     Route: 048

REACTIONS (11)
  - Death [Fatal]
  - Hepatic neoplasm [Unknown]
  - Skin cancer [Recovering/Resolving]
  - Skin mass [Recovering/Resolving]
  - Skin lesion [Recovering/Resolving]
  - Hair texture abnormal [Recovering/Resolving]
  - Abdominal pain [Recovering/Resolving]
  - Palmar-plantar erythrodysaesthesia syndrome [Recovering/Resolving]
  - Alopecia [Recovering/Resolving]
  - Drug ineffective [Unknown]
  - Extra dose administered [Unknown]

NARRATIVE: CASE EVENT DATE: 20220101
